FAERS Safety Report 6158119-3 (Version None)
Quarter: 2009Q2

REPORT INFORMATION
  Report Type: 
  Country: None (occurrence: None)
  Receive Date: 20090417
  Receipt Date: 20090409
  Transmission Date: 20091009
  Serious: Yes (Other)
  Sender: FDA-Public Use
  Company Number: GB-ROCHE-627170

PATIENT
  Sex: Female
  Weight: 80.3 kg

DRUGS (11)
  1. ORLISTAT [Suspect]
     Indication: OBESITY
     Route: 048
     Dates: start: 20080618
  2. DILTIAZEM HCL [Concomitant]
     Indication: CARDIAC DISORDER
     Route: 048
  3. RAMIPRIL [Concomitant]
     Indication: CARDIAC DISORDER
     Route: 048
  4. CLOPIDOGREL [Concomitant]
     Indication: ANTICOAGULANT THERAPY
     Route: 048
  5. BENDROFLUMETHIAZIDE [Concomitant]
     Indication: CARDIAC DISORDER
     Route: 048
  6. NICORANDIL [Concomitant]
     Indication: CARDIAC DISORDER
     Route: 048
  7. LIPITOR [Concomitant]
     Indication: CARDIAC DISORDER
     Route: 048
  8. PAROXETINE HCL [Concomitant]
     Indication: FIBROMYALGIA
     Dosage: DOSE: 1 1/2 X 20 MGS ONCE DAILY
     Route: 048
  9. LANSOPRAZOLE [Concomitant]
     Indication: PROPHYLAXIS
     Route: 048
  10. PARAMOL [Concomitant]
     Dosage: DOSE: 50 MG AS REQUIRED
     Route: 048
  11. TRAMADOL [Concomitant]
     Dosage: DOSE: 50 MG AS REQUIRED
     Route: 048

REACTIONS (1)
  - THYROIDECTOMY [None]
